FAERS Safety Report 24231355 (Version 1)
Quarter: 2024Q3

REPORT INFORMATION
  Report Type: Spontaneous
  Country: US (occurrence: US)
  Receive Date: 20240821
  Receipt Date: 20240821
  Transmission Date: 20241017
  Serious: No
  Sender: AMGEN
  Company Number: US-AMGEN-USASP2024164215

PATIENT
  Age: 65 Year
  Sex: Male

DRUGS (4)
  1. ENBREL [Suspect]
     Active Substance: BENZYL ALCOHOL\ETANERCEPT
     Indication: Product used for unknown indication
     Dosage: UNK
     Route: 065
     Dates: start: 2024
  2. ASPIRIN [Concomitant]
     Active Substance: ASPIRIN
  3. POTASSIUM CHLORIDE [Concomitant]
     Active Substance: POTASSIUM CHLORIDE
  4. XARELTO [Concomitant]
     Active Substance: RIVAROXABAN

REACTIONS (10)
  - Urticaria [Unknown]
  - Dyspnoea [Unknown]
  - Pain in extremity [Unknown]
  - Diplopia [Unknown]
  - Eye discharge [Unknown]
  - Dry eye [Unknown]
  - Insomnia [Unknown]
  - Dizziness [Unknown]
  - Blood urine present [Unknown]
  - Blood potassium decreased [Unknown]

NARRATIVE: CASE EVENT DATE: 20240101
